FAERS Safety Report 6844757-9 (Version None)
Quarter: 2010Q3

REPORT INFORMATION
  Report Type: 
  Country: None (occurrence: None)
  Receive Date: 20100712
  Receipt Date: 20100701
  Transmission Date: 20110219
  Serious: Yes (Hospitalization)
  Sender: FDA-Public Use
  Company Number: TRP_07089_2010

PATIENT
  Age: 58 Year
  Sex: Male

DRUGS (4)
  1. RIBASPHERE [Suspect]
     Indication: HEPATITIS C
     Dosage: DF ORAL
     Route: 048
     Dates: start: 20100422
  2. PEG-INTRON [Suspect]
     Indication: HEPATITIS C
     Dosage: DF SUBCUTANEOUS
     Route: 058
     Dates: start: 20100422
  3. LANTUS [Concomitant]
  4. METFORMIN HCL [Concomitant]

REACTIONS (15)
  - ASTHENIA [None]
  - BONE MARROW FAILURE [None]
  - DIARRHOEA [None]
  - DIZZINESS [None]
  - DYSSTASIA [None]
  - FALL [None]
  - GAIT DISTURBANCE [None]
  - HEADACHE [None]
  - HEPATIC FAILURE [None]
  - LABYRINTHITIS [None]
  - PRODUCTIVE COUGH [None]
  - RENAL FAILURE [None]
  - TREMOR [None]
  - VOMITING [None]
  - YELLOW SKIN [None]
